FAERS Safety Report 6158374-X (Version None)
Quarter: 2009Q2

REPORT INFORMATION
  Report Type: 
  Country: None (occurrence: None)
  Receive Date: 20090417
  Receipt Date: 20090409
  Transmission Date: 20091009
  Serious: Yes (Hospitalization)
  Sender: FDA-Public Use
  Company Number: FR-JNJFOC-20090403365

PATIENT
  Sex: Male

DRUGS (14)
  1. HALDOL [Suspect]
     Indication: ABNORMAL BEHAVIOUR
     Route: 048
  2. ALPRAZOLAM [Suspect]
     Indication: DRUG USE FOR UNKNOWN INDICATION
     Route: 048
  3. EUPRESSYL [Suspect]
     Indication: DRUG USE FOR UNKNOWN INDICATION
     Route: 048
  4. LASILIX [Suspect]
     Indication: DRUG USE FOR UNKNOWN INDICATION
     Route: 048
  5. CERVOXAN [Concomitant]
     Route: 048
  6. ALLOPURINOL [Concomitant]
     Route: 065
  7. EUPHYTOSE [Concomitant]
     Route: 048
  8. SPECIAFOLDINE [Concomitant]
     Route: 048
  9. SIMVASTATIN [Concomitant]
     Route: 048
  10. INSULATARD [Concomitant]
     Route: 065
  11. PREVISCAN [Concomitant]
     Route: 065
  12. CARDENSIEL [Concomitant]
     Route: 048
  13. AMLODIPINE BESYLATE [Concomitant]
     Route: 065
  14. ALL OTHER THERAPEUTICS [Concomitant]
     Route: 065

REACTIONS (3)
  - DEPRESSED LEVEL OF CONSCIOUSNESS [None]
  - ENCEPHALOPATHY [None]
  - MYOCLONUS [None]
